FAERS Safety Report 25269011 (Version 1)
Quarter: 2025Q2

REPORT INFORMATION
  Report Type: Spontaneous
  Country: US (occurrence: FR)
  Receive Date: 20250505
  Receipt Date: 20250505
  Transmission Date: 20250716
  Serious: Yes (Other)
  Sender: B BRAUN
  Company Number: FR-B.Braun Medical Inc.-2176165

PATIENT
  Age: 38 Year
  Sex: Male

DRUGS (2)
  1. ACETAMINOPHEN [Suspect]
     Active Substance: ACETAMINOPHEN
  2. COCAINE [Suspect]
     Active Substance: COCAINE

REACTIONS (5)
  - Nasal septum perforation [Unknown]
  - Drug use disorder [Unknown]
  - Substance use disorder [Unknown]
  - Rhinalgia [Unknown]
  - Nasal inflammation [Unknown]
